FAERS Safety Report 5642564-6 (Version None)
Quarter: 2008Q1

REPORT INFORMATION
  Report Type: 
  Country: None (occurrence: None)
  Receive Date: 20080227
  Receipt Date: 20080227
  Transmission Date: 20080703
  Serious: No
  Sender: FDA-Public Use
  Company Number: None

PATIENT
  Sex: Female

DRUGS (2)
  1. PAXIL [Suspect]
  2. WELLBUTRIN SR [Suspect]

REACTIONS (2)
  - SLEEP DISORDER [None]
  - WEIGHT INCREASED [None]
